FAERS Safety Report 6137716-5 (Version None)
Quarter: 2009Q1

REPORT INFORMATION
  Report Type: 
  Country: None (occurrence: None)
  Receive Date: 20090327
  Receipt Date: 20090316
  Transmission Date: 20090719
  Serious: Yes (Death)
  Sender: FDA-Public Use
  Company Number: 1000005304

PATIENT
  Age: 25 Year
  Sex: Female

DRUGS (9)
  1. ESCITALOPRAM [Suspect]
  2. ZYPREXA [Suspect]
     Dosage: 10 MG
  3. LITHIUM CARBONATE [Suspect]
  4. RISPERIDONE [Suspect]
  5. AMBIEN [Suspect]
  6. TEMAZEPAM [Suspect]
  7. NAPROXEN [Suspect]
  8. METHOCARBAMOL [Suspect]
  9. ALCOHOL [Suspect]

REACTIONS (2)
  - ALCOHOL POISONING [None]
  - DRUG TOXICITY [None]
